FAERS Safety Report 23902905 (Version 1)
Quarter: 2024Q2

REPORT INFORMATION
  Report Type: Spontaneous
  Country: AR (occurrence: AR)
  Receive Date: 20240527
  Receipt Date: 20240527
  Transmission Date: 20240716
  Serious: Yes (Other)
  Sender: FDA-Public Use
  Company Number: AR-IPCA LABORATORIES LIMITED-IPC-2024-AR-001210

PATIENT

DRUGS (1)
  1. HYDROXYCHLOROQUINE [Suspect]
     Active Substance: HYDROXYCHLOROQUINE
     Indication: Systemic lupus erythematosus
     Dosage: UNK
     Route: 065

REACTIONS (4)
  - Parathyroid tumour benign [Unknown]
  - Hyperparathyroidism primary [Unknown]
  - Hypercalcaemia [Unknown]
  - Maternal exposure during pregnancy [Unknown]
